FAERS Safety Report 15225437 (Version 1)
Quarter: 2018Q3

REPORT INFORMATION
  Report Type: Report from Study
  Country: DE (occurrence: DE)
  Receive Date: 20180801
  Receipt Date: 20180801
  Transmission Date: 20181010
  Serious: Yes (Hospitalization)
  Sender: FDA-Public Use
  Company Number: DE-AMGEN-DEUNI2018104058

PATIENT
  Age: 69 Year
  Sex: Male
  Weight: 73 kg

DRUGS (17)
  1. METHOTREXATE SODIUM. [Suspect]
     Active Substance: METHOTREXATE SODIUM
     Indication: PSORIASIS
     Dosage: 7.5 MG, WEEKLY
     Route: 058
     Dates: start: 20180407
  2. FENTANYL. [Concomitant]
     Active Substance: FENTANYL
     Dosage: 75 ?G/H
  3. OPIPRAMOL [Concomitant]
     Active Substance: OPIPRAMOL
     Dosage: 25 MG, 3X/DAY   0?0?1?2
  4. FOLIC ACID. [Concomitant]
     Active Substance: FOLIC ACID
     Dosage: 50 MG, WEEKLY (1X/WEEK)
  5. TRAMADOL. [Concomitant]
     Active Substance: TRAMADOL
     Dosage: DROPS IN THE NIGHT
  6. VALSARTAN COMP [Concomitant]
     Active Substance: HYDROCHLOROTHIAZIDE\VALSARTAN
     Dosage: UNK UNK, 1X/DAY  1?0?0?0
  7. ETANERCEPT [Suspect]
     Active Substance: ETANERCEPT
     Indication: PRODUCT USED FOR UNKNOWN INDICATION
     Dosage: 50 MG, QWK
     Route: 058
     Dates: start: 201803
  8. METOPROLOL. [Concomitant]
     Active Substance: METOPROLOL
     Dosage: 50 MG, 1X/DAY  (1?0?0?0)
  9. ESOMEPRAZOLE [Concomitant]
     Active Substance: ESOMEPRAZOLE
     Dosage: 40 MG, 1X/DAY   (0?0?1?0=
  10. TAMSULOSIN BETA [Concomitant]
     Dosage: 0.4 MG, 1X/DAY   (0?0?1?0)
  11. PREDNISOLONE. [Concomitant]
     Active Substance: PREDNISOLONE
     Dosage: 7.5 MG, 1X/DAY (1?0?0?0 )
  12. SIMVASTATIN. [Concomitant]
     Active Substance: SIMVASTATIN
     Dosage: 10 MG, 1X/DAY  (0?0?0?1)
  13. ASPIRIN. [Concomitant]
     Active Substance: ASPIRIN
     Dosage: 100 MG, 1X/DAY   0?1?0?0
  14. ALLOPURINOL. [Concomitant]
     Active Substance: ALLOPURINOL
     Dosage: 150 MG, 1X/DAY   (0?0?0?1)
  15. DEKRISTOL [Concomitant]
     Active Substance: CHOLECALCIFEROL
     Dosage: 2000 IU, 1X/DAY   0?1?0?0
  16. ESCITALOPRAM [Concomitant]
     Active Substance: ESCITALOPRAM OXALATE
     Dosage: 10 GTT, 1X/DAY  (10??0?0?0)
  17. MACROGOL [Concomitant]
     Active Substance: POLYETHYLENE GLYCOLS
     Dosage: 2X TO 3 X WEEKL

REACTIONS (1)
  - Psoriatic arthropathy [Recovered/Resolved]

NARRATIVE: CASE EVENT DATE: 20180404
